FAERS Safety Report 12021292 (Version 1)
Quarter: 2016Q1

REPORT INFORMATION
  Report Type: Report from Study
  Country: US (occurrence: US)
  Receive Date: 20160206
  Receipt Date: 20160206
  Transmission Date: 20160526
  Serious: No
  Sender: FDA-Public Use
  Company Number: US-ABBVIE-15K-163-1468061-00

PATIENT
  Sex: Female

DRUGS (2)
  1. HUMIRA [Suspect]
     Active Substance: ADALIMUMAB
     Route: 065
     Dates: start: 201509
  2. HUMIRA [Suspect]
     Active Substance: ADALIMUMAB
     Indication: PSORIATIC ARTHROPATHY
     Route: 065
     Dates: start: 20140425, end: 2015

REACTIONS (5)
  - Confusional state [Recovered/Resolved]
  - Drug effect decreased [Recovering/Resolving]
  - Vertigo [Recovered/Resolved]
  - Drug effect incomplete [Recovering/Resolving]
  - Psoriasis [Unknown]
